FAERS Safety Report 21298301 (Version 1)
Quarter: 2022Q3

REPORT INFORMATION
  Report Type: Spontaneous
  Country: CA (occurrence: CA)
  Receive Date: 20220906
  Receipt Date: 20220906
  Transmission Date: 20221026
  Serious: Yes (Other)
  Sender: FDA-Public Use
  Company Number: CA-PFIZER INC-202201017953

PATIENT
  Age: 75 Year
  Sex: Male

DRUGS (15)
  1. RUXIENCE [Suspect]
     Active Substance: RITUXIMAB-PVVR
     Indication: Rheumatoid arthritis
     Dosage: 1000 MG, DAY1 AND DAY 15
     Route: 042
     Dates: start: 20220726, end: 20220830
  2. RUXIENCE [Suspect]
     Active Substance: RITUXIMAB-PVVR
     Dosage: 1000 MG, DAY1 AND DAY 15
     Route: 042
     Dates: start: 20220830
  3. ALENDRONATE [Concomitant]
     Active Substance: ALENDRONATE SODIUM
     Dosage: 70 MG, WEEKLY
  4. SILVER SULFADIAZINE [Concomitant]
     Active Substance: SILVER SULFADIAZINE
     Dosage: 1%, 2X/DAY
  5. GABAPENTIN [Concomitant]
     Active Substance: GABAPENTIN
     Dosage: 300 MG, 3X/DAY
  6. HYDROXYCHLOROQUINE [Concomitant]
     Active Substance: HYDROXYCHLOROQUINE
     Dosage: 200 MG, 2X/DAY(BID)
  7. KEFLEX [Concomitant]
     Active Substance: CEPHALEXIN
     Dosage: UNK
  8. LATANOPROST [Concomitant]
     Active Substance: LATANOPROST
     Dosage: 50 UG/ML (MCG/ML L EYE Q 24 HRS)
  9. PANTOPRAZOLE [Concomitant]
     Active Substance: PANTOPRAZOLE
     Dosage: 40 MG, DAILY
  10. PREDNISONE [Concomitant]
     Active Substance: PREDNISONE
     Dosage: 15 MG, TAPERING DAILY
     Route: 065
     Dates: start: 202109
  11. PREDNISONE [Concomitant]
     Active Substance: PREDNISONE
     Dosage: 25 MG, DAILY
  12. PLAQUENIL [Concomitant]
     Active Substance: HYDROXYCHLOROQUINE SULFATE
     Dosage: UNK UNK, DAILY
     Route: 065
     Dates: start: 2021
  13. SENOKOT [Concomitant]
     Active Substance: SENNOSIDES
     Dosage: 8.6 MG, DAILY
  14. SULFATRIM [Concomitant]
     Active Substance: SULFAMETHOXAZOLE\TRIMETHOPRIM
     Dosage: 800/160 MG M W AND FRIDAY
  15. TERAZOSIN [Concomitant]
     Active Substance: TERAZOSIN HYDROCHLORIDE
     Dosage: 2 MG, BEDTIME

REACTIONS (3)
  - Ophthalmic herpes zoster [Unknown]
  - Inappropriate schedule of product administration [Unknown]
  - Swelling face [Not Recovered/Not Resolved]

NARRATIVE: CASE EVENT DATE: 20220101
